FAERS Safety Report 4580058-X (Version None)
Quarter: 2005Q1

REPORT INFORMATION
  Report Type: 
  Country: None (occurrence: None)
  Receive Date: 20050214
  Receipt Date: 20050203
  Transmission Date: 20050727
  Serious: Yes (Hospitalization)
  Sender: FDA-Public Use
  Company Number: JP-JNJFOC-20031001676

PATIENT
  Age: 61 Year
  Sex: Male

DRUGS (13)
  1. OFLOXACIN [Suspect]
     Indication: ENDOPHTHALMITIS
     Route: 042
     Dates: start: 20030901, end: 20030918
  2. OFLOXACIN [Suspect]
     Dates: start: 20030818, end: 20030901
  3. CORTANCYL [Concomitant]
     Route: 049
     Dates: start: 20030822, end: 20030922
  4. CORTANCYL [Concomitant]
     Route: 049
     Dates: start: 20030822, end: 20030922
  5. CORTANCYL [Concomitant]
     Indication: ENDOPHTHALMITIS
     Route: 049
     Dates: start: 20030822, end: 20030922
  6. VANCOMYCIN HCL [Concomitant]
     Indication: STAPHYLOCOCCAL INFECTION
     Dates: start: 20030917
  7. GENTALLINE [Concomitant]
     Indication: STAPHYLOCOCCAL INFECTION
     Dates: start: 20030917
  8. TIENAM [Concomitant]
     Dates: start: 20030917
  9. TIENAM [Concomitant]
     Indication: STAPHYLOCOCCAL INFECTION
     Dates: start: 20030917
  10. CILOXAN [Concomitant]
     Route: 031
     Dates: start: 20030811, end: 20030905
  11. STERDEX [Concomitant]
     Route: 047
     Dates: start: 20030811, end: 20030905
  12. ATROPINE [Concomitant]
     Route: 031
     Dates: start: 20030811, end: 20030905
  13. VEXOL [Concomitant]
     Route: 031
     Dates: start: 20030820

REACTIONS (7)
  - AGRANULOCYTOSIS [None]
  - ARTHRALGIA [None]
  - ASTHENIA [None]
  - CHILLS [None]
  - PYREXIA [None]
  - RASH PUSTULAR [None]
  - THROMBOCYTOPENIA [None]
